FAERS Safety Report 5402936-1 (Version None)
Quarter: 2007Q3

REPORT INFORMATION
  Report Type: 
  Country: None (occurrence: None)
  Receive Date: 20070801
  Receipt Date: 20070720
  Transmission Date: 20080115
  Serious: Yes (Hospitalization, Other)
  Sender: FDA-Public Use
  Company Number: US-AMGEN-US233203

PATIENT
  Sex: Male

DRUGS (25)
  1. EPOGEN [Suspect]
     Indication: DIALYSIS
     Route: 042
     Dates: start: 19990401
  2. ZYRTEC [Concomitant]
     Route: 048
  3. VALIUM [Concomitant]
     Route: 047
  4. COLACE [Concomitant]
     Route: 047
  5. FLONASE [Concomitant]
     Route: 055
  6. ATARAX [Concomitant]
     Route: 048
  7. LABETALOL HCL [Concomitant]
  8. PRINIVIL [Concomitant]
     Route: 048
  9. NEPHROCAPS [Concomitant]
  10. PERCOCET [Concomitant]
     Route: 048
  11. PAXIL [Concomitant]
     Route: 048
  12. ZOLOFT [Concomitant]
     Route: 048
  13. CATAPRES [Concomitant]
     Route: 048
  14. PEPCID [Concomitant]
     Route: 048
  15. RENAGEL [Concomitant]
  16. IRON [Concomitant]
  17. NITROGLYCERIN [Concomitant]
     Route: 060
  18. ULTRAM [Concomitant]
     Route: 048
  19. KENALOG [Concomitant]
  20. ADVIL LIQUI-GELS [Concomitant]
  21. SEVELAMER HCL [Concomitant]
     Route: 048
  22. MINOXIDIL [Concomitant]
     Route: 048
  23. DOXEPIN HCL [Concomitant]
     Route: 048
  24. LASIX [Concomitant]
     Route: 048
  25. DIATX [Concomitant]

REACTIONS (12)
  - ARACHNOID CYST [None]
  - ARTERIOVENOUS FISTULA SITE INFECTION [None]
  - CHEST PAIN [None]
  - HAEMOGLOBIN DECREASED [None]
  - HYPERKALAEMIA [None]
  - HYPOGLYCAEMIA [None]
  - LUNG NEOPLASM [None]
  - PERICARDIAL EFFUSION [None]
  - PERICARDITIS [None]
  - PNEUMONIA [None]
  - PULMONARY OEDEMA [None]
  - VASCULAR PSEUDOANEURYSM RUPTURED [None]
